FAERS Safety Report 5425890-5 (Version None)
Quarter: 2007Q3

REPORT INFORMATION
  Report Type: 
  Country: None (occurrence: None)
  Receive Date: 20070725
  Receipt Date: 20070417
  Transmission Date: 20080115
  Serious: Yes (Other)
  Sender: FDA-Public Use
  Company Number: USA-2007-0027089

PATIENT
  Age: 57 Year
  Sex: Female

DRUGS (2)
  1. MORPHINE SULFATE [Suspect]
     Indication: PAIN
  2. MUSCLE RELAXANTS [Suspect]
     Indication: MUSCLE TWITCHING

REACTIONS (1)
  - RESPIRATORY FAILURE [None]
